FAERS Safety Report 8837059 (Version 1)
Quarter: 2012Q4

REPORT INFORMATION
  Report Type: 
  Country: US (occurrence: US)
  Receive Date: 20121011
  Receipt Date: 20121011
  Transmission Date: 20130627
  Serious: Yes (Other)
  Sender: FDA-Public Use
  Company Number: CHPA2012US020784

PATIENT
  Age: 59 Year
  Sex: Male

DRUGS (2)
  1. CONTROL PLP [Suspect]
     Indication: SMOKING CESSATION THERAPY
     Dosage: 42 mg, UNK
     Route: 062
     Dates: start: 201209
  2. CONTROL PLP [Suspect]
     Dosage: 14 mg, UNK
     Route: 062

REACTIONS (4)
  - Pneumonia [Recovered/Resolved]
  - Treatment noncompliance [Unknown]
  - Expired drug administered [Unknown]
  - Overdose [Unknown]
